FAERS Safety Report 12147792 (Version 3)
Quarter: 2016Q2

REPORT INFORMATION
  Report Type: Report from Study
  Country: JP (occurrence: JP)
  Receive Date: 20160304
  Receipt Date: 20160617
  Transmission Date: 20160815
  Serious: Yes (Death)
  Sender: FDA-Public Use
  Company Number: JP-009507513-1603JPN002733

PATIENT
  Age: 74 Year
  Sex: Male
  Weight: 47 kg

DRUGS (2)
  1. CUBICIN [Suspect]
     Active Substance: DAPTOMYCIN
     Indication: STAPHYLOCOCCAL SEPSIS
     Dosage: 8 MG/KG, QOD
     Route: 041
     Dates: start: 20160227, end: 20160228
  2. CEFTRIAXONE SODIUM. [Concomitant]
     Active Substance: CEFTRIAXONE SODIUM
     Indication: STAPHYLOCOCCAL SEPSIS
     Dosage: 2 G, QD (DIVIDED DOSE FREQUENCY UNKNOWN)
     Route: 041
     Dates: start: 20160217, end: 20160224

REACTIONS (2)
  - Septic shock [Fatal]
  - Overdose [Unknown]

NARRATIVE: CASE EVENT DATE: 20160227
